FAERS Safety Report 25618348 (Version 2)
Quarter: 2025Q3

REPORT INFORMATION
  Report Type: Spontaneous
  Country: US (occurrence: US)
  Receive Date: 20250729
  Receipt Date: 20250819
  Transmission Date: 20251021
  Serious: No
  Sender: SANOFI AVENTIS
  Company Number: US-SANOFI-02601204

PATIENT
  Age: 61 Year
  Sex: Male

DRUGS (4)
  1. LANTUS SOLOSTAR [Suspect]
     Active Substance: INSULIN GLARGINE
     Indication: Diabetes mellitus
     Dosage: 12 IU, QD
     Dates: start: 20250321, end: 2025
  2. LANTUS SOLOSTAR [Suspect]
     Active Substance: INSULIN GLARGINE
     Dosage: 10 IU, QD
     Dates: start: 2025, end: 2025
  3. LANTUS SOLOSTAR [Suspect]
     Active Substance: INSULIN GLARGINE
     Dosage: 15 IU, QD
     Dates: start: 2025
  4. JARDIANCE [Concomitant]
     Active Substance: EMPAGLIFLOZIN

REACTIONS (6)
  - Hernia [Unknown]
  - Blood glucose increased [Unknown]
  - Incorrect dose administered by device [Unknown]
  - Device leakage [Unknown]
  - Blood glucose decreased [Unknown]
  - Keratomileusis [Unknown]

NARRATIVE: CASE EVENT DATE: 20250101
